FAERS Safety Report 5723901-0 (Version None)
Quarter: 2008Q2

REPORT INFORMATION
  Report Type: 
  Country: None (occurrence: None)
  Receive Date: 20080430
  Receipt Date: 20080418
  Transmission Date: 20081010
  Serious: Yes (Other)
  Sender: FDA-Public Use
  Company Number: GB-GILEAD-2008-0015892

PATIENT
  Sex: Female
  Weight: 77 kg

DRUGS (4)
  1. ATRIPLA [Suspect]
     Indication: HIV INFECTION
     Route: 048
     Dates: start: 20080310, end: 20080412
  2. TRUVADA [Concomitant]
     Indication: HIV INFECTION
     Dates: start: 20071029, end: 20080310
  3. EFAVIRENZ [Concomitant]
     Indication: HIV INFECTION
     Dates: start: 20071029, end: 20080310
  4. PRAVASTATIN [Concomitant]
     Indication: BLOOD CHOLESTEROL INCREASED
     Route: 048

REACTIONS (5)
  - ABDOMINAL PAIN [None]
  - DIARRHOEA [None]
  - OEDEMA PERIPHERAL [None]
  - PAIN IN EXTREMITY [None]
  - PRURITUS GENERALISED [None]
